FAERS Safety Report 6898501-X (Version None)
Quarter: 2010Q3

REPORT INFORMATION
  Report Type: 
  Country: None (occurrence: None)
  Receive Date: 20100802
  Receipt Date: 20080201
  Transmission Date: 20110219
  Serious: Yes (Other)
  Sender: FDA-Public Use
  Company Number: US-PFIZER INC-2007088050

PATIENT
  Sex: Female

DRUGS (1)
  1. PREGABALIN [Suspect]
     Dates: start: 20070801

REACTIONS (1)
  - WEIGHT INCREASED [None]
